FAERS Safety Report 13685960 (Version 1)
Quarter: 2017Q2

REPORT INFORMATION
  Report Type: Spontaneous
  Country: US (occurrence: US)
  Receive Date: 20170623
  Receipt Date: 20170623
  Transmission Date: 20170830
  Serious: Yes (Hospitalization)
  Sender: FDA-Public Use
  Company Number: US-ROCHE-1137164

PATIENT
  Sex: Female

DRUGS (13)
  1. CELLCEPT [Suspect]
     Active Substance: MYCOPHENOLATE MOFETIL\MYCOPHENOLATE MOFETIL HYDROCHLORIDE
     Indication: PRODUCT USED FOR UNKNOWN INDICATION
     Route: 065
  2. EPOGEN [Concomitant]
     Active Substance: ERYTHROPOIETIN
     Route: 065
  3. PREDNISONE. [Concomitant]
     Active Substance: PREDNISONE
     Route: 065
     Dates: start: 199707
  4. VINCRISTINE [Concomitant]
     Active Substance: VINCRISTINE
  5. CAPTOPRIL. [Concomitant]
     Active Substance: CAPTOPRIL
     Route: 065
  6. BACTRIM DS [Concomitant]
     Active Substance: SULFAMETHOXAZOLE\TRIMETHOPRIM
     Route: 065
  7. PRILOSEC [Concomitant]
     Active Substance: OMEPRAZOLE MAGNESIUM
     Route: 065
  8. PREDNISONE. [Concomitant]
     Active Substance: PREDNISONE
     Route: 065
     Dates: start: 199409, end: 199612
  9. VP-16 [Concomitant]
     Active Substance: ETOPOSIDE
  10. ACYCLOVIR. [Concomitant]
     Active Substance: ACYCLOVIR
     Route: 065
  11. METHOTREXATE. [Concomitant]
     Active Substance: METHOTREXATE
  12. CYTOXAN [Concomitant]
     Active Substance: CYCLOPHOSPHAMIDE
  13. IRON [Concomitant]
     Active Substance: IRON
     Route: 065

REACTIONS (5)
  - Diarrhoea [Unknown]
  - Pyrexia [Unknown]
  - Herpes zoster [Unknown]
  - Headache [Unknown]
  - Dysgeusia [Recovered/Resolved]
